FAERS Safety Report 9129468 (Version 1)
Quarter: 2013Q1

REPORT INFORMATION
  Report Type: Spontaneous
  Country: US (occurrence: US)
  Receive Date: 20130125
  Receipt Date: 20130125
  Transmission Date: 20140127
  Serious: No
  Sender: FDA-Public Use
  Company Number: US-TEVA-382275USA

PATIENT
  Age: 26 Year
  Sex: Female
  Weight: 108.96 kg

DRUGS (2)
  1. PLAN B ONE-STEP [Suspect]
     Indication: POST COITAL CONTRACEPTION
     Dosage: 1.5 MILLIGRAM DAILY;
     Route: 048
     Dates: start: 20130102, end: 20130102
  2. LAMOTRIGINE [Concomitant]
     Indication: AFFECTIVE DISORDER

REACTIONS (3)
  - Emotional disorder [Recovered/Resolved]
  - Breast tenderness [Recovered/Resolved]
  - Menstruation irregular [Recovered/Resolved]
